FAERS Safety Report 9927876 (Version 1)
Quarter: 2014Q1

REPORT INFORMATION
  Report Type: Spontaneous
  Country: US (occurrence: None)
  Receive Date: 20140226
  Receipt Date: 20140226
  Transmission Date: 20141002
  Serious: Yes (Death)
  Sender: FDA-Public Use
  Company Number: None

PATIENT
  Age: 64 Year
  Sex: Female

DRUGS (5)
  1. DECITABINE [Suspect]
     Indication: ACUTE MYELOID LEUKAEMIA
     Dosage: 20MG/M2, QDX10; 28DAYCYCLE
     Dates: start: 20131121, end: 20140205
  2. ACYCLOVIR [Concomitant]
  3. CIPROFLOXACIN HCL [Concomitant]
  4. FAMOTIDINE [Concomitant]
  5. FLUCONAZOLE [Suspect]

REACTIONS (1)
  - Clostridium difficile colitis [None]
